FAERS Safety Report 7420782-4 (Version None)
Quarter: 2011Q2

REPORT INFORMATION
  Report Type: 
  Country: None (occurrence: None)
  Receive Date: 20110418
  Receipt Date: 20110405
  Transmission Date: 20111010
  Serious: Yes (Other)
  Sender: FDA-Public Use
  Company Number: FR-PFIZER INC-2011083251

PATIENT
  Age: 54 Year
  Sex: Male

DRUGS (7)
  1. ALLOPURINOL [Concomitant]
     Indication: HYPERURICAEMIA
     Dosage: UNK
  2. AMLODIPINE BESYLATE [Suspect]
     Indication: HYPERTENSION
     Dosage: UNK
     Dates: end: 20100707
  3. BISOPROLOL FUMARATE [Suspect]
     Indication: HYPERTENSION
     Dosage: UNK
     Route: 048
     Dates: start: 20100704, end: 20100716
  4. CRESTOR [Concomitant]
     Indication: DYSLIPIDAEMIA
     Dosage: UNK
  5. HYDROCHLOROTHIAZIDE [Suspect]
     Indication: HYPERTENSION
     Dosage: UNK
     Dates: end: 20100707
  6. ACTONEL [Concomitant]
     Indication: OSTEOPOROSIS
     Dosage: UNK
  7. OLMESARTAN MEDOXOMIL [Suspect]
     Indication: HYPERTENSION
     Dosage: UNK
     Route: 048
     Dates: end: 20100707

REACTIONS (1)
  - ECZEMA [None]
